FAERS Safety Report 24271961 (Version 1)
Quarter: 2024Q3

REPORT INFORMATION
  Report Type: Spontaneous
  Country: FR (occurrence: FR)
  Receive Date: 20240902
  Receipt Date: 20240902
  Transmission Date: 20241016
  Serious: Yes (Hospitalization, Other)
  Sender: AUROBINDO
  Company Number: FR-AFSSAPS-LL2024001596

PATIENT
  Age: 84 Year
  Sex: Male
  Weight: 85 kg

DRUGS (2)
  1. ERTAPENEM [Suspect]
     Active Substance: ERTAPENEM
     Indication: Bacterial infection
     Dosage: 2 GRAM (AT NOON)
     Route: 042
     Dates: start: 20240802, end: 20240808
  2. MEROPENEM [Suspect]
     Active Substance: MEROPENEM
     Indication: Bacterial infection
     Dosage: 2 GRAM, 3 TIMES A DAY
     Route: 042
     Dates: start: 20240802, end: 20240808

REACTIONS (1)
  - Epilepsy [Not Recovered/Not Resolved]

NARRATIVE: CASE EVENT DATE: 20240808
